FAERS Safety Report 4824362-6 (Version None)
Quarter: 2005Q4

REPORT INFORMATION
  Report Type: 
  Country: None (occurrence: None)
  Receive Date: 20051108
  Receipt Date: 20050418
  Transmission Date: 20060501
  Serious: Yes (Other)
  Sender: FDA-Public Use
  Company Number: 2005069021

PATIENT
  Age: 32 Year
  Sex: Female
  Weight: 99.7913 kg

DRUGS (6)
  1. GEODON [Suspect]
     Indication: ILL-DEFINED DISORDER
     Dosage: 80 MG (80 MG, 1 IN 1 D), ORAL
     Route: 048
     Dates: start: 20040101, end: 20050401
  2. ZOLOFT [Suspect]
     Indication: ILL-DEFINED DISORDER
     Dosage: (50 MG)
  3. AMBIEN [Concomitant]
  4. ORAL CONTRACEPTIVE NOS (ORAL CONTRACEPTIVE NOS) [Concomitant]
  5. TRIFLUOPERAZINE (TRIFLUOPERAZINE) [Concomitant]
  6. HYDROXYZINE [Concomitant]

REACTIONS (6)
  - ABORTION SPONTANEOUS [None]
  - ANXIETY [None]
  - DRUG DEPENDENCE [None]
  - DRUG EXPOSURE DURING PREGNANCY [None]
  - INSOMNIA [None]
  - PREGNANCY ON ORAL CONTRACEPTIVE [None]
